FAERS Safety Report 4531081-2 (Version None)
Quarter: 2004Q4

REPORT INFORMATION
  Report Type: 
  Country: None (occurrence: None)
  Receive Date: 20041215
  Receipt Date: 20041206
  Transmission Date: 20050328
  Serious: Yes (Hospitalization)
  Sender: FDA-Public Use
  Company Number: 200410649BYL

PATIENT
  Age: 54 Year
  Sex: Male

DRUGS (5)
  1. ASPIRIN [Suspect]
     Indication: THROMBOSIS PROPHYLAXIS
     Dosage: 100 MG, QD, ORAL
     Route: 048
     Dates: start: 20041119, end: 20041122
  2. PLETAL [Suspect]
     Indication: THROMBOSIS PROPHYLAXIS
     Dosage: 200 MG, TOTAL DAILY, ORAL
     Route: 048
     Dates: start: 20041119, end: 20041122
  3. GASTER D [Concomitant]
  4. URSO 250 [Concomitant]
  5. CEFAMEZIN [Concomitant]

REACTIONS (2)
  - PYREXIA [None]
  - THROMBOCYTOPENIA [None]
